FAERS Safety Report 21637927 (Version 1)
Quarter: 2022Q4

REPORT INFORMATION
  Report Type: Spontaneous
  Country: US (occurrence: US)
  Receive Date: 20221124
  Receipt Date: 20221124
  Transmission Date: 20230112
  Serious: No
  Sender: FDA-Public Use
  Company Number: US-AIMMUNE THERAPEUTICS, INC.-2022AIMT02740

PATIENT

DRUGS (19)
  1. PALFORZIA [Suspect]
     Active Substance: PEANUT
     Indication: Food allergy
     Dosage: IDE (0.5-6MG), ONCE
     Route: 048
     Dates: start: 20220228, end: 20220228
  2. PALFORZIA [Suspect]
     Active Substance: PEANUT
     Dosage: 240 MG, 1X/DAY
     Route: 048
     Dates: start: 20220802, end: 20221104
  3. PALFORZIA [Suspect]
     Active Substance: PEANUT
     Dosage: 240 MG, LAST DOSE PRIOR TO EVENTS
     Route: 048
     Dates: start: 20221102, end: 20221102
  4. PALFORZIA [Suspect]
     Active Substance: PEANUT
     Dosage: 200 MG, 1X/DAY, DOSE RESTARTED AT A DECREASED LEVEL
     Route: 048
     Dates: start: 20221110
  5. SINGULAIR [Concomitant]
     Active Substance: MONTELUKAST SODIUM
     Indication: Product used for unknown indication
  6. QVAR [Concomitant]
     Active Substance: BECLOMETHASONE DIPROPIONATE
     Indication: Product used for unknown indication
     Dosage: 80 MICROGRAMS, 1-2 PUFFS, EVERY 12 HOURS
     Dates: start: 20220418
  7. EUCRISA [Concomitant]
     Active Substance: CRISABOROLE
     Indication: Product used for unknown indication
     Dosage: 2 %, TWO TIMES EVERY DAY
     Route: 061
     Dates: start: 20211101
  8. TRIAMCINOLONE [Concomitant]
     Active Substance: TRIAMCINOLONE
     Indication: Product used for unknown indication
     Dosage: 0.1 %
  9. AUVI-Q [Concomitant]
     Active Substance: EPINEPHRINE
     Indication: Anaphylactic reaction
     Dosage: 0.3 MG
     Route: 030
     Dates: start: 20220802
  10. CETIRIZINE HYDROCHLORIDE [Concomitant]
     Active Substance: CETIRIZINE HYDROCHLORIDE
     Indication: Hypersensitivity
     Dosage: EVERY 8 HOURS WHEN NEEDED
     Route: 048
     Dates: start: 20220802
  11. CORTISONE [Concomitant]
     Active Substance: CORTISONE
     Indication: Product used for unknown indication
     Dosage: 1 %, APPLIED AS NEEDED
     Route: 061
  12. VANICREAM [Concomitant]
     Active Substance: TITANIUM DIOXIDE\ZINC OXIDE
     Indication: Product used for unknown indication
     Dosage: 0.1 %, APPLIED AS NEEDED
     Route: 061
     Dates: start: 20211101
  13. AZELASTIN [AZELASTINE HYDROCHLORIDE] [Concomitant]
     Indication: Rhinitis
     Dosage: 137 MICROGRAMS, 1 SPRAY IN EACH NOSTRIL
     Dates: start: 20211101
  14. ZYRTEC [Concomitant]
     Active Substance: CETIRIZINE HYDROCHLORIDE
     Indication: Product used for unknown indication
     Dosage: 10 MG, 1X/DAY
     Route: 048
  15. RYCLORA [Concomitant]
     Active Substance: DEXCHLORPHENIRAMINE MALEATE
     Indication: Hypersensitivity
     Dosage: 2.5 MG/ML, EVERY 6 HOURS
     Route: 048
     Dates: start: 20211101
  16. FAMOTIDINE [Concomitant]
     Active Substance: FAMOTIDINE
     Indication: Gastrooesophageal reflux disease
     Dosage: 20 MG, 2X/DAY
     Dates: start: 20220331
  17. VENTOLIN HFA [Concomitant]
     Active Substance: ALBUTEROL SULFATE
     Indication: Dyspnoea
     Dosage: INHALE 2 PUFF EVERY 4-6 HOURS AS NEEDED
     Dates: start: 20220802
  18. VENTOLIN HFA [Concomitant]
     Active Substance: ALBUTEROL SULFATE
     Indication: Wheezing
  19. VENTOLIN HFA [Concomitant]
     Active Substance: ALBUTEROL SULFATE
     Indication: Chest discomfort

REACTIONS (8)
  - Influenza [Unknown]
  - Throat clearing [Unknown]
  - Nasal congestion [Unknown]
  - Upper-airway cough syndrome [Unknown]
  - Eye pruritus [Unknown]
  - Dry skin [Unknown]
  - Otitis media [Unknown]
  - Tympanic membrane hyperaemia [Unknown]

NARRATIVE: CASE EVENT DATE: 20221103
